FAERS Safety Report 7426126-6 (Version None)
Quarter: 2011Q2

REPORT INFORMATION
  Report Type: 
  Country: None (occurrence: None)
  Receive Date: 20110420
  Receipt Date: 20110408
  Transmission Date: 20111010
  Serious: Yes (Hospitalization)
  Sender: FDA-Public Use
  Company Number: PHHY2011DE22434

PATIENT
  Sex: Male

DRUGS (12)
  1. METOPROLOL [Concomitant]
     Indication: HYPERTENSION
  2. ATACAND [Concomitant]
     Indication: HYPERTENSION
     Dosage: 16 MG, DAILY
     Route: 048
  3. ALENDRONATE SODIUM [Concomitant]
     Indication: OSTEOPOROSIS
     Dosage: 70 MG, WEEKLY
  4. RASILEZ [Suspect]
     Indication: HYPERTENSION
     Dosage: 150 MG PER DAY
     Route: 048
     Dates: start: 20100301, end: 20100301
  5. ACETYLSALICYLIC ACID SRT [Concomitant]
     Indication: CORONARY ARTERY DISEASE
     Dosage: 100 MG, DAILY
     Route: 048
  6. PLAVIX [Concomitant]
     Indication: CORONARY ARTERY DISEASE
     Dosage: 75 MG, DAILY
     Route: 048
  7. TORSEMIDE [Concomitant]
     Indication: HYPERTENSION
     Dosage: 5 MG,DAILY
     Route: 048
  8. ACETYLSALICYLIC ACID SRT [Concomitant]
     Indication: MYOCARDIAL INFARCTION
  9. SIMVASTATIN [Concomitant]
     Indication: HYPERLIPIDAEMIA
  10. METOPROLOL [Concomitant]
     Indication: CORONARY ARTERY DISEASE
     Dosage: 95 MG, DAILY
  11. PLAVIX [Concomitant]
     Indication: MYOCARDIAL INFARCTION
  12. SIMVASTATIN [Concomitant]
     Indication: CORONARY ARTERY DISEASE
     Dosage: 20 MG DAILY

REACTIONS (2)
  - PULMONARY FIBROSIS [None]
  - RASH [None]
